FAERS Safety Report 4317566-2 (Version None)
Quarter: 2004Q1

REPORT INFORMATION
  Report Type: 
  Country: None (occurrence: None)
  Receive Date: 20040312
  Receipt Date: 20040303
  Transmission Date: 20041129
  Serious: Yes (Death, Hospitalization)
  Sender: FDA-Public Use
  Company Number: DE-JNJFOC-20040301573

PATIENT
  Age: 85 Year
  Sex: Male

DRUGS (4)
  1. RISPERDAL [Suspect]
     Indication: DEMENTIA
     Dosage: 0.5 MG, IN 1 DAY, ORAL
     Route: 048
     Dates: start: 20040130, end: 20040208
  2. DOMINAL (PROTHIPENDYL HYDROCHLORIDE) [Suspect]
     Dosage: SEE IMAGE
     Route: 048
     Dates: start: 20040130, end: 20040205
  3. DOMINAL (PROTHIPENDYL HYDROCHLORIDE) [Suspect]
     Dosage: SEE IMAGE
     Route: 048
     Dates: start: 20040206
  4. CALCIUM CARBONATE (CALCIUM CARBONATE) [Concomitant]

REACTIONS (5)
  - ABDOMINAL PAIN [None]
  - CEREBROVASCULAR ACCIDENT [None]
  - DRUG INTERACTION [None]
  - URINARY RETENTION [None]
  - URINARY TRACT INFECTION [None]
